FAERS Safety Report 8760436 (Version 1)
Quarter: 2012Q4

REPORT INFORMATION
  Report Type: 
  Country: US (occurrence: US)
  Receive Date: 20120830
  Receipt Date: 20120830
  Transmission Date: 20130627
  Serious: Yes (Other)
  Sender: FDA-Public Use
  Company Number: US-JNJFOC-20120811809

PATIENT

DRUGS (2)
  1. TOPIRAMATE [Suspect]
     Indication: EPILEPSY
     Route: 048
  2. OXCARBAZEPINE [Suspect]
     Indication: EPILEPSY
     Route: 065

REACTIONS (1)
  - Vitamin D decreased [Unknown]
